FAERS Safety Report 20322303 (Version 1)
Quarter: 2022Q1

REPORT INFORMATION
  Report Type: Spontaneous
  Country: US (occurrence: US)
  Receive Date: 20220111
  Receipt Date: 20220111
  Transmission Date: 20220423
  Serious: No
  Sender: FDA-Public Use
  Company Number: US-ABBVIE-21K-163-4048653-00

PATIENT
  Age: 63 Year
  Sex: Male

DRUGS (4)
  1. DUOPA [Suspect]
     Active Substance: CARBIDOPA\LEVODOPA
     Indication: Product used for unknown indication
     Route: 050
     Dates: start: 2019
  2. DUOPA [Suspect]
     Active Substance: CARBIDOPA\LEVODOPA
  3. COVID-19 VACCINE [Concomitant]
     Indication: COVID-19 immunisation
     Dosage: JOHNSON AND JOHNSON/DID NOT HAVE THE LOT NUMBER 02 APR 2021
  4. ONGENTYS [Concomitant]
     Active Substance: OPICAPONE
     Indication: Product used for unknown indication

REACTIONS (4)
  - Hallucination [Not Recovered/Not Resolved]
  - Somnambulism [Not Recovered/Not Resolved]
  - Incontinence [Not Recovered/Not Resolved]
  - Device breakage [Recovered/Resolved]

NARRATIVE: CASE EVENT DATE: 20210812
